FAERS Safety Report 5354819-3 (Version None)
Quarter: 2007Q2

REPORT INFORMATION
  Report Type: 
  Country: None (occurrence: None)
  Receive Date: 20070611
  Receipt Date: 20070529
  Transmission Date: 20071010
  Serious: Yes (Other)
  Sender: FDA-Public Use
  Company Number: TPA2007A01094

PATIENT
  Age: 58 Year
  Sex: Male
  Weight: 83.4619 kg

DRUGS (4)
  1. ACTOS [Suspect]
     Indication: DIABETES MELLITUS NON-INSULIN-DEPENDENT
     Dosage: 15 MG, 1 IN 1 D, PER ORAL
     Route: 048
  2. GLYBURIDE [Concomitant]
  3. LISINOPRIL [Concomitant]
  4. RIBAVIRIN INTERFERON (RIBAVIRIN) [Concomitant]

REACTIONS (6)
  - BLOOD GLUCOSE DECREASED [None]
  - DISEASE RECURRENCE [None]
  - GLYCOSYLATED HAEMOGLOBIN INCREASED [None]
  - HEPATITIS C [None]
  - INSOMNIA [None]
  - TREMOR [None]
